FAERS Safety Report 5046488-7 (Version None)
Quarter: 2006Q3

REPORT INFORMATION
  Report Type: 
  Country: None (occurrence: None)
  Receive Date: 20060705
  Receipt Date: 20060705
  Transmission Date: 20061208
  Serious: No
  Sender: FDA-Public Use
  Company Number: None

PATIENT
  Sex: Female
  Weight: 63.05 kg

DRUGS (1)
  1. RYTHMOL [Suspect]
     Indication: ATRIAL FLUTTER
     Dosage: 150MG  ONE BID   P.O.
     Route: 048
     Dates: start: 20051201, end: 20060616

REACTIONS (2)
  - ELECTROCARDIOGRAM ABNORMAL [None]
  - HYPOTHYROIDISM [None]
